FAERS Safety Report 11391708 (Version 1)
Quarter: 2015Q3

REPORT INFORMATION
  Report Type: Spontaneous
  Country: US (occurrence: None)
  Receive Date: 20150814
  Receipt Date: 20150814
  Transmission Date: 20151125
  Serious: Yes (Other)
  Sender: FDA-Public Use
  Company Number: None

PATIENT
  Age: 47 Year
  Sex: Female
  Weight: 66.68 kg

DRUGS (5)
  1. PATENOL EYE DROPS [Concomitant]
  2. LEVAQUIN [Suspect]
     Active Substance: LEVOFLOXACIN
     Indication: SINUSITIS
     Route: 048
     Dates: start: 20150812, end: 20150812
  3. ALLERGY PILLS [Concomitant]
     Active Substance: UNSPECIFIED INGREDIENT
  4. NASAL SPRAY [Concomitant]
     Active Substance: UNSPECIFIED INGREDIENT
  5. MELATONIN [Concomitant]
     Active Substance: MELATONIN

REACTIONS (10)
  - Crying [None]
  - Burning sensation [None]
  - Paraesthesia [None]
  - Muscular weakness [None]
  - Musculoskeletal pain [None]
  - Pain [None]
  - Pain in extremity [None]
  - Hypoaesthesia [None]
  - Palpitations [None]
  - Tremor [None]

NARRATIVE: CASE EVENT DATE: 20150813
